FAERS Safety Report 10333679 (Version 1)
Quarter: 2014Q3

REPORT INFORMATION
  Report Type: Spontaneous
  Country: US (occurrence: US)
  Receive Date: 20140723
  Receipt Date: 20140723
  Transmission Date: 20150326
  Serious: No
  Sender: FDA-Public Use
  Company Number: US-UNITED THERAPEUTICS-UTC-048015

PATIENT
  Sex: Female
  Weight: 61.23 kg

DRUGS (2)
  1. WARFARIN [Concomitant]
     Active Substance: WARFARIN
  2. REMODULIN [Suspect]
     Active Substance: TREPROSTINIL
     Dates: start: 20100306

REACTIONS (6)
  - Heart rate increased [Recovering/Resolving]
  - Medical device complication [Unknown]
  - Accidental overdose [Unknown]
  - Flushing [Unknown]
  - Drug dose omission [Unknown]
  - Palpitations [Recovering/Resolving]
